FAERS Safety Report 5300042-8 (Version None)
Quarter: 2007Q2

REPORT INFORMATION
  Report Type: 
  Country: None (occurrence: None)
  Receive Date: 20070410
  Receipt Date: 20070329
  Transmission Date: 20071010
  Serious: Yes (Hospitalization)
  Sender: FDA-Public Use
  Company Number: B0461405A

PATIENT
  Age: 63 Year
  Sex: Female
  Weight: 60.8727 kg

DRUGS (2)
  1. VALTREX [Suspect]
     Indication: HERPES ZOSTER
     Dosage: 1000 MG / THREE TIMES PER DAY / ORAL
     Route: 048
     Dates: start: 20070302, end: 20070306
  2. MAGNESIUM OXIDE [Concomitant]

REACTIONS (5)
  - ABDOMINAL PAIN [None]
  - ANOREXIA [None]
  - ENCEPHALOPATHY [None]
  - PAIN [None]
  - RENAL FAILURE ACUTE [None]
